FAERS Safety Report 5262083-9 (Version None)
Quarter: 2007Q1

REPORT INFORMATION
  Report Type: 
  Country: None (occurrence: None)
  Receive Date: 20070311
  Receipt Date: 20070228
  Transmission Date: 20070707
  Serious: No
  Sender: FDA-Public Use
  Company Number: 2006UW08330

PATIENT
  Age: 702 Month
  Sex: Female
  Weight: 94.5 kg

DRUGS (5)
  1. SEROQUEL [Suspect]
     Indication: BIPOLAR DISORDER
     Route: 048
     Dates: start: 20010101
  2. GEODON [Concomitant]
  3. RISPERDAL [Concomitant]
  4. TRILAFON [Concomitant]
     Dates: start: 20040801, end: 20060901
  5. ZOLOFT [Concomitant]

REACTIONS (1)
  - DIABETES MELLITUS [None]
